FAERS Safety Report 14314466 (Version 2)
Quarter: 2018Q1

REPORT INFORMATION
  Report Type: Spontaneous
  Country: JP (occurrence: JP)
  Receive Date: 20171221
  Receipt Date: 20180111
  Transmission Date: 20180509
  Serious: Yes (Death, Other)
  Sender: FDA-Public Use
  Company Number: JP-GILEAD-2017-0311976

PATIENT
  Age: 71 Year
  Sex: Male

DRUGS (2)
  1. ETRAVIRINE [Concomitant]
     Active Substance: ETRAVIRINE
     Dosage: UNK
     Dates: start: 20170923
  2. TENOFOVIR DISOPROXIL FUMARATE. [Suspect]
     Active Substance: TENOFOVIR DISOPROXIL FUMARATE
     Indication: PRODUCT USED FOR UNKNOWN INDICATION
     Dosage: UNK
     Route: 065
     Dates: start: 20170923

REACTIONS (1)
  - Hepatocellular carcinoma [Fatal]
